FAERS Safety Report 6958860-6 (Version None)
Quarter: 2010Q3

REPORT INFORMATION
  Report Type: 
  Country: None (occurrence: None)
  Receive Date: 20100831
  Receipt Date: 20100819
  Transmission Date: 20110219
  Serious: Yes (Hospitalization)
  Sender: FDA-Public Use
  Company Number: US-BAYER-201030717NA

PATIENT
  Age: 34 Year
  Sex: Female

DRUGS (8)
  1. BETASERON [Suspect]
     Indication: RELAPSING-REMITTING MULTIPLE SCLEROSIS
     Dosage: TOTAL DAILY DOSE: 8 MIU
     Route: 058
     Dates: start: 20100216
  2. LORTAB [Concomitant]
     Dosage: TOTAL DAILY DOSE: 7.5 MG
     Route: 048
  3. HYDROCODONE [Concomitant]
  4. LYRICA [Concomitant]
  5. LAMICTAL [Concomitant]
  6. BACLOFEN [Concomitant]
  7. NUVIGIL [Concomitant]
  8. AMBIENT [Concomitant]

REACTIONS (1)
  - PAIN IN EXTREMITY [None]
